FAERS Safety Report 23670035 (Version 1)
Quarter: 2024Q1

REPORT INFORMATION
  Report Type: Spontaneous
  Country: US (occurrence: US)
  Receive Date: 20240325
  Receipt Date: 20240325
  Transmission Date: 20240410
  Serious: No
  Sender: FDA-Public Use
  Company Number: US-TPU-TPU-2024-00098

PATIENT
  Sex: Male

DRUGS (2)
  1. LIDODERM [Suspect]
     Active Substance: LIDOCAINE
     Indication: Myalgia
     Route: 061
  2. LIDOCAINE PATCH [Concomitant]
     Active Substance: LIDOCAINE
     Indication: Accident

REACTIONS (4)
  - Wrong technique in product usage process [Unknown]
  - Accident [Unknown]
  - Rib fracture [Unknown]
  - Incorrect product administration duration [Unknown]
